FAERS Safety Report 5650510-4 (Version None)
Quarter: 2008Q1

REPORT INFORMATION
  Report Type: 
  Country: None (occurrence: None)
  Receive Date: 20080305
  Receipt Date: 20080221
  Transmission Date: 20080703
  Serious: Yes (Hospitalization, Other)
  Sender: FDA-Public Use
  Company Number: PHBS2008TW02522

PATIENT
  Age: 22 Year
  Sex: Female

DRUGS (3)
  1. EXJADE [Suspect]
     Indication: IRON OVERLOAD
     Dosage: 20 MG/KG/DAY
     Route: 048
  2. EXJADE [Suspect]
     Dosage: 10 MG/KG/DAY
  3. FERRIPROX [Suspect]

REACTIONS (5)
  - BLOOD GLUCOSE INCREASED [None]
  - GASTRIC HAEMORRHAGE [None]
  - GASTRIC ULCER [None]
  - RASH [None]
  - STOMACH DISCOMFORT [None]
